FAERS Safety Report 5566934-X (Version None)
Quarter: 2007Q4

REPORT INFORMATION
  Report Type: 
  Country: None (occurrence: None)
  Receive Date: 20071219
  Receipt Date: 20070601
  Transmission Date: 20080405
  Serious: No
  Sender: FDA-Public Use
  Company Number: US-BRISTOL-MYERS SQUIBB COMPANY-13739503

PATIENT
  Age: 72 Year
  Sex: Male

DRUGS (4)
  1. PRAVACHOL [Suspect]
     Dates: start: 19960101
  2. LIPITOR [Suspect]
  3. CRESTOR [Suspect]
  4. LESCOL [Suspect]

REACTIONS (2)
  - MYALGIA [None]
  - PAIN IN EXTREMITY [None]
